FAERS Safety Report 9525685 (Version 2)
Quarter: 2013Q3

REPORT INFORMATION
  Report Type: Report from Study
  Country: US (occurrence: US)
  Receive Date: 20130916
  Receipt Date: 20130916
  Transmission Date: 20140515
  Serious: Yes (Life-Threatening, Hospitalization)
  Sender: FDA-Public Use
  Company Number: US-TAKEDA-TPA2013A04462

PATIENT
  Age: 62 Year
  Sex: Male
  Weight: 132.9 kg

DRUGS (17)
  1. BLINDED ALLOPURINOL [Suspect]
     Indication: HYPERURICAEMIA
     Dosage: UNK UNK, QD
     Route: 048
     Dates: start: 20100510
  2. BLINDED FEBUXOSTAT [Suspect]
     Indication: HYPERURICAEMIA
     Dosage: UNK UNK, QD
     Route: 048
     Dates: start: 20100510
  3. ASPIRIN [Concomitant]
     Indication: CARDIOVASCULAR EVENT PROPHYLAXIS
     Dosage: 81 MG, QD
     Route: 048
     Dates: start: 1994
  4. SIMVASTATIN [Concomitant]
     Indication: HYPERLIPIDAEMIA
     Dosage: 80 MG, QD
     Route: 048
     Dates: start: 20100111
  5. CLONAZEPAM [Concomitant]
     Indication: ANXIETY
     Dosage: 1 MG, QD
     Route: 048
     Dates: start: 20091008
  6. MULTAQ [Concomitant]
     Indication: ATRIAL FIBRILLATION
     Dosage: 400 MG, BID
     Route: 048
     Dates: start: 20100414
  7. HYDROCODONE [Concomitant]
     Indication: GOUT
     Dosage: 5 MG, PRN
     Route: 048
     Dates: start: 20100324
  8. ACETAMINOPHEN [Concomitant]
     Indication: GOUT
     Dosage: 500 MG, PRN
     Route: 048
     Dates: start: 20100324
  9. LOSARTAN [Concomitant]
     Indication: HYPERTENSION
     Dosage: 50 MG, BID
     Route: 048
     Dates: start: 20100802
  10. OMEPRAZOLE [Concomitant]
     Indication: GASTROOESOPHAGEAL REFLUX DISEASE
     Dosage: 20 MG, PRN
     Route: 048
     Dates: start: 20100802
  11. CITALOPRAM [Concomitant]
     Indication: DEPRESSION
     Dosage: 40 MG, QD
     Route: 048
     Dates: start: 20100802
  12. GABAPENTIN [Concomitant]
     Indication: MUSCLE SPASMS
     Dosage: 300 MG, BID
     Route: 048
     Dates: start: 20100801
  13. TORSEMIDE [Concomitant]
     Indication: FLUID RETENTION
     Dosage: 50 MG, UNK, MWF
     Route: 048
     Dates: start: 20100802
  14. CARVEDILOL [Concomitant]
     Indication: HYPERTENSION
     Dosage: 25 MG, BID
     Route: 048
     Dates: start: 20100802
  15. COUMADIN                           /00014802/ [Concomitant]
     Indication: DEEP VEIN THROMBOSIS
     Dosage: 5 MG, T, TH, SA, SU
     Route: 048
     Dates: start: 20100803
  16. COUMADIN                           /00014802/ [Concomitant]
     Dosage: 7.5 MG, UNK, M W Z
     Route: 048
     Dates: start: 20100803
  17. COLCHICINE [Concomitant]
     Indication: GOUT
     Dosage: 0.6 MG, QD
     Route: 048
     Dates: start: 20101108

REACTIONS (2)
  - Endocarditis [Recovering/Resolving]
  - Device related infection [Recovering/Resolving]
